FAERS Safety Report 12445722 (Version 3)
Quarter: 2019Q3

REPORT INFORMATION
  Report Type: Spontaneous
  Country: US (occurrence: US)
  Receive Date: 20160608
  Receipt Date: 20190729
  Transmission Date: 20191004
  Serious: Yes (Other)
  Sender: FDA-Public Use
  Company Number: US-JNJFOC-20160508248

PATIENT
  Age: 33 Year
  Sex: Male

DRUGS (2)
  1. RISPERDAL [Suspect]
     Active Substance: RISPERIDONE
     Indication: SCHIZOPHRENIA
     Route: 048
     Dates: start: 200301, end: 200309
  2. RISPERDAL [Suspect]
     Active Substance: RISPERIDONE
     Indication: PSYCHOTIC DISORDER
     Route: 048
     Dates: start: 2003, end: 2004

REACTIONS (7)
  - Increased appetite [Unknown]
  - Lymphadenopathy [Unknown]
  - Muscle spasms [Unknown]
  - Blood prolactin increased [Recovered/Resolved]
  - Gynaecomastia [Unknown]
  - Abnormal weight gain [Unknown]
  - Emotional disorder [Unknown]

NARRATIVE: CASE EVENT DATE: 2003
